FAERS Safety Report 9928123 (Version 1)
Quarter: 2014Q1

REPORT INFORMATION
  Report Type: Spontaneous
  Country: GB (occurrence: GB)
  Receive Date: 20140227
  Receipt Date: 20140227
  Transmission Date: 20141002
  Serious: Yes (Other)
  Sender: FDA-Public Use
  Company Number: GB-TEVA-463445ISR

PATIENT
  Age: 74 Year
  Sex: Male
  Weight: 70.8 kg

DRUGS (9)
  1. RAMIPRIL [Suspect]
     Indication: HYPERTENSION
     Dates: start: 20131209
  2. ATENOLOL [Concomitant]
     Dates: start: 20131001, end: 20131225
  3. BENDROFLUMETHIAZIDE [Concomitant]
     Dates: start: 20131001
  4. CO-CODAMOL [Concomitant]
     Dates: start: 20140115
  5. DUTASTERIDE [Concomitant]
     Dates: start: 20131001
  6. OMEPRAZOLE [Concomitant]
     Dates: start: 20131001
  7. PHENOXYMETHYLPENICILLIN [Concomitant]
     Dates: start: 20131001
  8. SILDENAFIL [Concomitant]
     Dates: start: 20131106, end: 20131204
  9. TAMSULOSIN HYDROCHLORIDE [Concomitant]
     Dates: start: 20131001, end: 20131225

REACTIONS (2)
  - Dyspepsia [Unknown]
  - Abdominal distension [Unknown]
